FAERS Safety Report 24423459 (Version 1)
Quarter: 2024Q4

REPORT INFORMATION
  Report Type: Spontaneous
  Country: FR (occurrence: FR)
  Receive Date: 20241010
  Receipt Date: 20241010
  Transmission Date: 20250114
  Serious: Yes (Hospitalization)
  Sender: WAYLIS
  Company Number: None

PATIENT
  Age: 33 Year
  Sex: Male

DRUGS (14)
  1. VALIUM [Suspect]
     Active Substance: DIAZEPAM
     Indication: Product used for unknown indication
     Dosage: 10 CP
     Dates: start: 20230509, end: 20230510
  2. COCAINE [Suspect]
     Active Substance: COCAINE
     Indication: Product used for unknown indication
     Route: 050
     Dates: start: 2010, end: 2015
  3. COCAINE [Suspect]
     Active Substance: COCAINE
     Route: 050
     Dates: start: 2010, end: 2015
  4. COCAINE [Suspect]
     Active Substance: COCAINE
     Route: 050
     Dates: start: 2010
  5. METHADONE [Suspect]
     Active Substance: METHADONE HYDROCHLORIDE
     Indication: Product used for unknown indication
     Dates: start: 2010
  6. MIDOMAFETAMINE [Suspect]
     Active Substance: MIDOMAFETAMINE
     Indication: Product used for unknown indication
     Dosage: 3 TIMES A WEEK
     Dates: start: 2010, end: 2011
  7. MIDOMAFETAMINE [Suspect]
     Active Substance: MIDOMAFETAMINE
     Dosage: OCCASIONAL MONTHLY CONSUMPTION
     Dates: start: 2011
  8. ACUPAN [Suspect]
     Active Substance: NEFOPAM HYDROCHLORIDE
     Indication: Product used for unknown indication
     Route: 050
     Dates: start: 20230510, end: 20230530
  9. NICOTINE\TOBACCO LEAF [Suspect]
     Active Substance: NICOTINE\TOBACCO LEAF
     Indication: Product used for unknown indication
     Dosage: 10 CIGARETTES PER DAY
     Route: 050
  10. HEROIN [Suspect]
     Active Substance: DIAMORPHINE
     Indication: Product used for unknown indication
     Route: 050
     Dates: start: 2010
  11. HEROIN [Suspect]
     Active Substance: DIAMORPHINE
     Dosage: CURRENTLY MONTHLY CONSUMPTION
     Route: 050
     Dates: start: 2010
  12. ALCOHOL [Suspect]
     Active Substance: ALCOHOL
     Indication: Product used for unknown indication
     Route: 050
     Dates: start: 2017
  13. LORAZEPAM [Suspect]
     Active Substance: LORAZEPAM
     Indication: Product used for unknown indication
     Dates: start: 2011
  14. METHYLPHENIDATE HYDROCHLORIDE [Suspect]
     Active Substance: METHYLPHENIDATE HYDROCHLORIDE
     Indication: Product used for unknown indication
     Dates: start: 2018

REACTIONS (6)
  - Drug dependence [Not Recovered/Not Resolved]
  - Blood alkaline phosphatase increased [Recovering/Resolving]
  - Drug withdrawal syndrome [Recovered/Resolved]
  - Seizure [Recovered/Resolved with Sequelae]
  - Poor dental condition [Recovering/Resolving]
  - Drug abuse [Not Recovered/Not Resolved]

NARRATIVE: CASE EVENT DATE: 20100101
